FAERS Safety Report 4633560-6 (Version None)
Quarter: 2005Q2

REPORT INFORMATION
  Report Type: 
  Country: None (occurrence: None)
  Receive Date: 20050411
  Receipt Date: 20050411
  Transmission Date: 20051028
  Serious: Yes (Hospitalization)
  Sender: FDA-Public Use
  Company Number: None

PATIENT
  Age: 71 Year
  Sex: Female
  Weight: 101 kg

DRUGS (3)
  1. WARFARIN  5MG   DUPONT [Suspect]
     Indication: ATRIAL FIBRILLATION
     Dosage: 5MG/2.5MG   MWF/RO W  ORAL
     Route: 048
     Dates: start: 20040101, end: 20050408
  2. COLCHICINE [Concomitant]
  3. FOSINOPRIL [Concomitant]

REACTIONS (4)
  - CEREBROVASCULAR ACCIDENT [None]
  - DIARRHOEA [None]
  - INTERNATIONAL NORMALISED RATIO DECREASED [None]
  - VIRAL INFECTION [None]
